FAERS Safety Report 5212398-5 (Version None)
Quarter: 2007Q1

REPORT INFORMATION
  Report Type: 
  Country: None (occurrence: None)
  Receive Date: 20070118
  Receipt Date: 20070108
  Transmission Date: 20070707
  Serious: Yes (Other)
  Sender: FDA-Public Use
  Company Number: FR-PFIZER INC-2007002726

PATIENT

DRUGS (1)
  1. LYRICA [Suspect]

REACTIONS (3)
  - AGITATION [None]
  - HYPOMANIA [None]
  - MEMORY IMPAIRMENT [None]
